FAERS Safety Report 5518453-4 (Version None)
Quarter: 2007Q4

REPORT INFORMATION
  Report Type: 
  Country: None (occurrence: None)
  Receive Date: 20071115
  Receipt Date: 20071107
  Transmission Date: 20080405
  Serious: Yes (Hospitalization, Other)
  Sender: FDA-Public Use
  Company Number: US-PFIZER INC-2006150901

PATIENT
  Sex: Male
  Weight: 86.2 kg

DRUGS (2)
  1. CELEBREX [Suspect]
     Indication: BACK PAIN
     Route: 048
  2. VIOXX [Suspect]
     Indication: ARTHRITIS
     Route: 048
     Dates: start: 20010101

REACTIONS (1)
  - CEREBROVASCULAR ACCIDENT [None]
